FAERS Safety Report 7327087-0 (Version None)
Quarter: 2011Q1

REPORT INFORMATION
  Report Type: 
  Country: None (occurrence: None)
  Receive Date: 20110222
  Receipt Date: 20110214
  Transmission Date: 20110831
  Serious: Yes (Other)
  Sender: FDA-Public Use
  Company Number: 2010SP061583

PATIENT
  Sex: Female

DRUGS (4)
  1. ZOLOFT [Concomitant]
  2. KLONOPIN [Concomitant]
  3. LITHIUM [Concomitant]
  4. SAPHRIS [Suspect]
     Indication: PRODUCT USED FOR UNKNOWN INDICATION
     Dosage: 5 MG; HS; SL
     Route: 060
     Dates: start: 20100824

REACTIONS (5)
  - GAIT DISTURBANCE [None]
  - PSYCHOTIC DISORDER [None]
  - ANGER [None]
  - FEELING DRUNK [None]
  - CONDITION AGGRAVATED [None]
